FAERS Safety Report 5808901-4 (Version None)
Quarter: 2008Q3

REPORT INFORMATION
  Report Type: 
  Country: None (occurrence: None)
  Receive Date: 20080714
  Receipt Date: 20080625
  Transmission Date: 20090109
  Serious: Yes (Hospitalization)
  Sender: FDA-Public Use
  Company Number: JP-MERCK-0806USA09009

PATIENT
  Age: 78 Year
  Sex: Female
  Weight: 55 kg

DRUGS (5)
  1. HYZAAR [Suspect]
     Indication: HYPERTENSION
     Route: 048
     Dates: start: 20070323, end: 20080520
  2. PRAVASTATIN SODIUM [Concomitant]
     Indication: HYPERLIPIDAEMIA
     Route: 048
     Dates: start: 20060209, end: 20080520
  3. ASPIRIN [Concomitant]
     Route: 048
     Dates: start: 20061217, end: 20080520
  4. ARIMIDEX [Concomitant]
     Indication: BREAST CANCER
     Route: 048
     Dates: start: 20050808, end: 20080520
  5. EPHEDRA [Concomitant]
     Route: 048
     Dates: start: 20080408, end: 20080415

REACTIONS (4)
  - COUGH [None]
  - DYSPNOEA [None]
  - INTERSTITIAL LUNG DISEASE [None]
  - PALPITATIONS [None]
